FAERS Safety Report 10944552 (Version 1)
Quarter: 2015Q1

REPORT INFORMATION
  Report Type: Spontaneous
  Country: ES (occurrence: None)
  Receive Date: 20150318
  Receipt Date: 20150318
  Transmission Date: 20150721
  Serious: Yes (Hospitalization, Other)
  Sender: FDA-Public Use
  Company Number: ES-ZYDUS-006948

PATIENT
  Age: 69 Year
  Sex: Female

DRUGS (3)
  1. RIBAVIRIN (RIBAVIRIN) [Suspect]
     Active Substance: RIBAVIRIN
     Dates: start: 201210
  2. TELAPREVIR (TELAPREVIR) [Suspect]
     Active Substance: TELAPREVIR
     Dates: start: 201210
  3. PEGINTERFERON ALFA-2A (PEGINTERFERON ALFA-2A) [Suspect]
     Active Substance: PEGINTERFERON ALFA-2A
     Dates: start: 201210

REACTIONS (11)
  - Parotitis [None]
  - Pleural effusion [None]
  - Oedema [None]
  - Sepsis [None]
  - Tachycardia [None]
  - Dyspnoea [None]
  - Depressed level of consciousness [None]
  - Cellulitis [None]
  - Ascites [None]
  - Haemoglobin decreased [None]
  - Haematocrit decreased [None]
